FAERS Safety Report 20139080 (Version 7)
Quarter: 2023Q2

REPORT INFORMATION
  Report Type: Report from Study
  Country: CN (occurrence: CN)
  Receive Date: 20211202
  Receipt Date: 20230501
  Transmission Date: 20230722
  Serious: Yes (Death, Hospitalization)
  Sender: FDA-Public Use
  Company Number: CN-ASTELLAS-2021US045620

PATIENT
  Age: 44 Year
  Sex: Female

DRUGS (2)
  1. GILTERITINIB [Suspect]
     Active Substance: GILTERITINIB
     Indication: Acute myeloid leukaemia
     Route: 048
     Dates: start: 20190720, end: 20220425
  2. PIPERACILLIN\SULBACTAM [Concomitant]
     Active Substance: PIPERACILLIN\SULBACTAM
     Indication: Infection
     Dosage: UNK UNK, UNKNOWN FREQ.
     Route: 042

REACTIONS (4)
  - Sepsis [Fatal]
  - Pneumonia [Not Recovered/Not Resolved]
  - Condition aggravated [Not Recovered/Not Resolved]
  - Upper respiratory tract infection [Recovered/Resolved]

NARRATIVE: CASE EVENT DATE: 20211116
